FAERS Safety Report 4553589-6 (Version None)
Quarter: 2004Q4

REPORT INFORMATION
  Report Type: 
  Country: None (occurrence: None)
  Receive Date: 20041227
  Receipt Date: 20041027
  Transmission Date: 20050328
  Serious: No
  Sender: FDA-Public Use
  Company Number: 04P-163-0279165-00

PATIENT
  Age: 49 Year
  Sex: Female
  Weight: 70.3075 kg

DRUGS (10)
  1. HUMIRA [Suspect]
     Indication: RHEUMATOID ARTHRITIS
     Dosage: 40 MG, 1 IN 2 WK, SUBCUTANEOUS
     Route: 058
     Dates: start: 20040915
  2. BUPROPION HYDROCHLORIDE [Concomitant]
  3. HYDROXYCHLOROQUINE SULFATE [Concomitant]
  4. ZITIA [Concomitant]
  5. ESTROGENS CONJUGATED [Concomitant]
  6. HYDROCHLOROTHIAZIDE [Concomitant]
  7. GABAPENTIN [Concomitant]
  8. LEXAPRO [Concomitant]
  9. MELOXICAM [Concomitant]
  10. TRAZODONE [Concomitant]

REACTIONS (1)
  - PHARYNGOLARYNGEAL PAIN [None]
